FAERS Safety Report 18612082 (Version 16)
Quarter: 2022Q1

REPORT INFORMATION
  Report Type: Report from Study
  Country: CA (occurrence: None)
  Receive Date: 20201214
  Receipt Date: 20220119
  Transmission Date: 20220424
  Serious: Yes (Hospitalization)
  Sender: FDA-Public Use
  Company Number: CA-EISAI MEDICAL RESEARCH-EC-2020-085163

PATIENT
  Age: 66 Year
  Sex: Female
  Weight: 63.4 kg

DRUGS (9)
  1. LENVATINIB [Suspect]
     Active Substance: LENVATINIB
     Indication: Endometrial cancer
     Route: 048
     Dates: start: 20200903, end: 20201207
  2. PEMBROLIZUMAB [Suspect]
     Active Substance: PEMBROLIZUMAB
     Indication: Endometrial cancer
     Route: 041
     Dates: start: 20200903, end: 20200924
  3. PEMBROLIZUMAB [Suspect]
     Active Substance: PEMBROLIZUMAB
     Route: 041
     Dates: start: 20201016, end: 20201016
  4. ENALAPRIL [Concomitant]
     Active Substance: ENALAPRIL
     Route: 065
     Dates: start: 20200923
  5. INDAPAMIDE [Concomitant]
     Active Substance: INDAPAMIDE
     Route: 065
     Dates: start: 20201015
  6. BETAMETHASONE [Concomitant]
     Active Substance: BETAMETHASONE
     Route: 065
     Dates: start: 20201009
  7. LEVOTHYROXINE SODIUM [Concomitant]
     Active Substance: LEVOTHYROXINE SODIUM
     Route: 065
     Dates: start: 20201117, end: 20201213
  8. PREDNISONE [Concomitant]
     Active Substance: PREDNISONE
     Route: 065
     Dates: start: 20201119, end: 20201125
  9. PREDNISONE [Concomitant]
     Active Substance: PREDNISONE
     Route: 065
     Dates: start: 20201203, end: 20201209

REACTIONS (3)
  - Failure to thrive [Recovered/Resolved]
  - Dehydration [Recovered/Resolved]
  - Drug-induced liver injury [Not Recovered/Not Resolved]

NARRATIVE: CASE EVENT DATE: 20201208
